FAERS Safety Report 11807327 (Version 1)
Quarter: 2015Q4

REPORT INFORMATION
  Report Type: Spontaneous
  Country: FR (occurrence: FR)
  Receive Date: 20151207
  Receipt Date: 20151207
  Transmission Date: 20160305
  Serious: Yes (Hospitalization)
  Sender: FDA-Public Use
  Company Number: FR-BAYER-2015-477912

PATIENT
  Sex: Female

DRUGS (1)
  1. MIRENA [Suspect]
     Active Substance: LEVONORGESTREL
     Indication: CONTRACEPTION
     Dosage: 20 MCG/24HR, CONT
     Route: 015
     Dates: start: 20151020, end: 201511

REACTIONS (8)
  - C-reactive protein increased [Recovered/Resolved]
  - Depression [Recovered/Resolved]
  - Syncope [Recovered/Resolved]
  - Headache [Recovered/Resolved]
  - Genital haemorrhage [Recovered/Resolved]
  - Abdominal distension [Recovered/Resolved]
  - Choking [Recovered/Resolved]
  - Local swelling [Recovered/Resolved]

NARRATIVE: CASE EVENT DATE: 20151104
